FAERS Safety Report 12660313 (Version 2)
Quarter: 2018Q4

REPORT INFORMATION
  Report Type: Spontaneous
  Country: US (occurrence: US)
  Receive Date: 20160817
  Receipt Date: 20181022
  Transmission Date: 20190204
  Serious: Yes (Life-Threatening, Other)
  Sender: FDA-Public Use
  Company Number: US-BAYER-2016-154185

PATIENT
  Age: 67 Year
  Sex: Female

DRUGS (3)
  1. CYCLOPHOSPHAMIDE. [Suspect]
     Active Substance: CYCLOPHOSPHAMIDE
     Indication: PLEOMORPHIC MALIGNANT FIBROUS HISTIOCYTOMA
  2. DOXORUBICIN [Suspect]
     Active Substance: DOXORUBICIN
     Indication: PLEOMORPHIC MALIGNANT FIBROUS HISTIOCYTOMA
  3. DACARBAZINE. [Suspect]
     Active Substance: DACARBAZINE
     Indication: PLEOMORPHIC MALIGNANT FIBROUS HISTIOCYTOMA

REACTIONS (6)
  - Neutropenia [None]
  - Septic shock [None]
  - Urinary tract infection pseudomonal [None]
  - Bacteraemia [None]
  - Wound infection bacterial [None]
  - Hypotension [None]
